FAERS Safety Report 7810350-4 (Version None)
Quarter: 2011Q4

REPORT INFORMATION
  Report Type: 
  Country: None (occurrence: None)
  Receive Date: 20111012
  Receipt Date: 20111005
  Transmission Date: 20120403
  Serious: Yes (Hospitalization, Other)
  Sender: FDA-Public Use
  Company Number: PHEH2009US11084

PATIENT
  Sex: Female

DRUGS (20)
  1. XELODA [Concomitant]
  2. COUMADIN [Concomitant]
     Dosage: 3 MG, QD
  3. CRESTOR [Concomitant]
     Dosage: 10 MG, QD
  4. AMOXICILLIN [Concomitant]
     Dosage: 875 MG, BID
  5. AREDIA [Suspect]
  6. ZEBUTAL [Concomitant]
  7. IMITREX [Concomitant]
     Dosage: 100 MG, PRN
  8. LORAZEPAM [Concomitant]
  9. MACROBID [Concomitant]
  10. NEXIUM [Concomitant]
     Dosage: 40 MG, QD
  11. VICODIN [Concomitant]
  12. ZOMETA [Suspect]
  13. CELEBREX [Concomitant]
     Indication: ARTHRITIS
  14. MECLIZINE [Concomitant]
     Dosage: 25 MG, TID, PRN
  15. ABILIFY [Concomitant]
     Dosage: 2 MG, QHS
  16. FENTANYL [Concomitant]
     Dosage: 225 UG, QOD
  17. AMBIEN [Concomitant]
  18. ALLEGRA D 24 HOUR [Concomitant]
  19. CELEXA [Concomitant]
     Indication: DEPRESSION
  20. NASACORT [Concomitant]

REACTIONS (26)
  - HAEMORRHAGE [None]
  - DENTAL CARIES [None]
  - MIGRAINE [None]
  - ANAEMIA [None]
  - SLEEP APNOEA SYNDROME [None]
  - METASTASES TO BONE [None]
  - TACHYCARDIA [None]
  - INJURY [None]
  - OSTEONECROSIS OF JAW [None]
  - ANHEDONIA [None]
  - COMA [None]
  - LOWER LIMB FRACTURE [None]
  - INSOMNIA [None]
  - URINARY TRACT INFECTION [None]
  - HIATUS HERNIA [None]
  - CARDIAC FAILURE CONGESTIVE [None]
  - ABDOMINAL PAIN UPPER [None]
  - CONSTIPATION [None]
  - PULMONARY THROMBOSIS [None]
  - ARTHRITIS [None]
  - LIP ULCERATION [None]
  - HYPOAESTHESIA [None]
  - PAIN [None]
  - CARDIAC MURMUR [None]
  - DEPRESSION [None]
  - ANXIETY [None]
